FAERS Safety Report 16390660 (Version 4)
Quarter: 2019Q4

REPORT INFORMATION
  Report Type: Report from Study
  Country: US (occurrence: US)
  Receive Date: 20190604
  Receipt Date: 20191218
  Transmission Date: 20200122
  Serious: Yes (Hospitalization)
  Sender: FDA-Public Use
  Company Number: US-ACTELION-A-NJ2019-191090

PATIENT
  Age: 61 Year
  Sex: Female

DRUGS (1)
  1. OPSUMIT [Suspect]
     Active Substance: MACITENTAN
     Indication: PULMONARY ARTERIAL HYPERTENSION
     Dosage: 10 MG, QD
     Route: 048
     Dates: start: 201904, end: 20190503

REACTIONS (12)
  - Acute kidney injury [Not Recovered/Not Resolved]
  - Cardiac operation [Not Recovered/Not Resolved]
  - Haemodialysis [Not Recovered/Not Resolved]
  - Cox-Maze procedure [Not Recovered/Not Resolved]
  - Post procedural complication [Not Recovered/Not Resolved]
  - Hospitalisation [Unknown]
  - Atrial septal defect repair [Not Recovered/Not Resolved]
  - Atrial appendage closure [Not Recovered/Not Resolved]
  - Sepsis [Not Recovered/Not Resolved]
  - Acute pulmonary oedema [Not Recovered/Not Resolved]
  - Cardiac arrest [Not Recovered/Not Resolved]
  - Atrial fibrillation [Not Recovered/Not Resolved]

NARRATIVE: CASE EVENT DATE: 20190508
